FAERS Safety Report 9802741 (Version 1)
Quarter: 2014Q1

REPORT INFORMATION
  Report Type: Spontaneous
  Country: US (occurrence: US)
  Receive Date: 20140108
  Receipt Date: 20140108
  Transmission Date: 20141002
  Serious: No
  Sender: FDA-Public Use
  Company Number: US-009507513-1312USA010827

PATIENT
  Sex: Female

DRUGS (2)
  1. DULERA [Suspect]
     Dosage: UNK
  2. LOSARTAN POTASSIUM TABLETS [Suspect]
     Dosage: UNK

REACTIONS (1)
  - Dyspnoea [Unknown]
